FAERS Safety Report 7420692-2 (Version None)
Quarter: 2011Q2

REPORT INFORMATION
  Report Type: 
  Country: None (occurrence: None)
  Receive Date: 20110418
  Receipt Date: 20101123
  Transmission Date: 20111010
  Serious: Yes (Death, Hospitalization)
  Sender: FDA-Public Use
  Company Number: US-BAYER-201036742NA

PATIENT
  Age: 46 Year
  Sex: Female
  Weight: 74.83 kg

DRUGS (22)
  1. YASMIN [Suspect]
     Indication: HORMONE THERAPY
  2. LOMOTIL [Concomitant]
     Indication: DIARRHOEA
     Dosage: UNK
     Dates: start: 20090212
  3. LOPERAMIDE [Concomitant]
     Indication: DIARRHOEA
     Dosage: UNK UNK, PRN
     Route: 048
     Dates: start: 20090213
  4. ESOMEPRAZOLE [Concomitant]
     Indication: GASTROOESOPHAGEAL REFLUX DISEASE
     Dosage: UNK UNK, QD
     Route: 048
     Dates: start: 20090202
  5. MOTRIN [Concomitant]
     Indication: PYREXIA
     Dosage: UNK UNK, PRN
     Dates: start: 20090210
  6. K-DUR [Concomitant]
     Dosage: UNK
     Dates: start: 20090212
  7. NEXIUM [Concomitant]
     Dosage: UNK
     Dates: start: 20090212
  8. MONTELUKAST [Concomitant]
     Indication: DYSPNOEA
     Dosage: UNK
     Route: 048
     Dates: start: 20080204
  9. SUDAFED 12 HOUR [Concomitant]
     Dosage: UNK
     Dates: start: 20080901
  10. FLEXERIL [Concomitant]
     Dosage: UNK UNK, PRN
     Dates: start: 20081201
  11. YAZ [Suspect]
     Indication: PREMENSTRUAL SYNDROME
     Dosage: UNK UNK, QD
     Route: 048
     Dates: start: 20080827, end: 20090115
  12. IBUPROFEN [Concomitant]
     Indication: PYREXIA
     Dosage: UNK UNK, PRN
  13. FLONASE [Concomitant]
     Dosage: UNK
     Route: 045
     Dates: start: 20090212
  14. YAZ [Suspect]
     Indication: HORMONE THERAPY
  15. YASMIN [Suspect]
     Indication: PREMENSTRUAL SYNDROME
     Dosage: UNK
     Route: 048
     Dates: start: 20090201, end: 20090201
  16. AZELASTINE HCL [Concomitant]
     Indication: HYPERSENSITIVITY
     Dosage: UNK
     Route: 045
     Dates: start: 20081121
  17. IMODIUM [Concomitant]
     Indication: DIARRHOEA
     Dosage: UNK UNK, PRN
     Dates: start: 20090210
  18. ZOFRAN [Concomitant]
     Dosage: UNK
     Dates: start: 20090212
  19. ONDANSETRON [Concomitant]
     Indication: NAUSEA
     Dosage: UNK UNK, PRN
     Route: 048
     Dates: start: 20090213
  20. ACETAMINOPHEN [Concomitant]
     Indication: PYREXIA
     Dosage: UNK UNK, PRN
     Dates: start: 20090210
  21. SINGULAIR [Concomitant]
     Dosage: UNK
     Dates: start: 20090220
  22. FLUTICASONE PROPIONATE [Concomitant]
     Indication: DYSPNOEA
     Dosage: UNK
     Route: 045
     Dates: start: 20090202

REACTIONS (10)
  - CHEST PAIN [None]
  - CARDIAC ARREST [None]
  - DYSPNOEA [None]
  - DIZZINESS [None]
  - CHILLS [None]
  - TACHYPNOEA [None]
  - PULMONARY EMBOLISM [None]
  - PYREXIA [None]
  - ASTHENIA [None]
  - DEEP VEIN THROMBOSIS [None]
